FAERS Safety Report 5175914-8 (Version None)
Quarter: 2006Q4

REPORT INFORMATION
  Report Type: 
  Country: None (occurrence: None)
  Receive Date: 20061215
  Receipt Date: 20061204
  Transmission Date: 20070319
  Serious: Yes (Hospitalization)
  Sender: FDA-Public Use
  Company Number: FRWYE727604DEC06

PATIENT
  Age: 43 Year
  Sex: Female

DRUGS (4)
  1. ENBREL [Suspect]
     Indication: ANKYLOSING SPONDYLITIS
     Dosage: 2 DOSES TOTAL WEEKLY
     Route: 058
     Dates: start: 20060115, end: 20060825
  2. DURAGESIC-100 [Concomitant]
     Dosage: UNKNOWN
     Route: 062
  3. REQUIP [Concomitant]
     Dosage: UNKNOWN
     Route: 048
  4. EFFEXOR [Concomitant]
     Indication: DYSTHYMIC DISORDER
     Dosage: UNKNOWN
     Route: 048

REACTIONS (1)
  - ERYTHEMA NODOSUM [None]
